FAERS Safety Report 8173561-7 (Version None)
Quarter: 2012Q1

REPORT INFORMATION
  Report Type: 
  Country: None (occurrence: None)
  Receive Date: 20120224
  Receipt Date: 20120213
  Transmission Date: 20120608
  Serious: Yes (Other)
  Sender: FDA-Public Use
  Company Number: AUR-APL-2011-06294

PATIENT
  Age: 69 Year
  Sex: Female

DRUGS (7)
  1. GABAPENTIN [Suspect]
     Indication: PRODUCT USED FOR UNKNOWN INDICATION
     Dosage: (1600 MG),ORAL
     Route: 048
     Dates: start: 20100601
  2. CRESTOR [Concomitant]
  3. METOPROLOL TARTRATE [Concomitant]
  4. PANTOPRAZOLE [Concomitant]
  5. RISOSORBIDE MONONITRIATE (ISOSORBIDE MONONITRATE) [Concomitant]
  6. AMLODIPINE [Concomitant]
  7. METFORMIN HCL [Concomitant]

REACTIONS (2)
  - MEDICATION RESIDUE [None]
  - DIARRHOEA [None]
